FAERS Safety Report 4417019-7 (Version None)
Quarter: 2004Q2

REPORT INFORMATION
  Report Type: 
  Country: None (occurrence: None)
  Receive Date: 20040629
  Receipt Date: 20040224
  Transmission Date: 20050107
  Serious: No
  Sender: FDA-Public Use
  Company Number: US067616

PATIENT
  Sex: Female

DRUGS (6)
  1. ARANESP [Suspect]
     Indication: ANAEMIA
     Dosage: 1 IN 2 WEEKS
     Dates: start: 20040101
  2. ATORVASTAIN CALCIUM [Concomitant]
  3. LISINOPRIL [Concomitant]
  4. DILTIAZEM HYDROCHLORIDE [Concomitant]
  5. CALCIUM [Concomitant]
  6. MULTI-VITAMINS [Concomitant]

REACTIONS (1)
  - SKIN DISCOLOURATION [None]
